FAERS Safety Report 5578890-9 (Version None)
Quarter: 2008Q1

REPORT INFORMATION
  Report Type: 
  Country: None (occurrence: None)
  Receive Date: 20080102
  Receipt Date: 20071129
  Transmission Date: 20080703
  Serious: No
  Sender: FDA-Public Use
  Company Number: US-BAYER-200511921BWH

PATIENT
  Age: 82 Year
  Sex: Male
  Weight: 83 kg

DRUGS (10)
  1. LEVITRA [Suspect]
     Indication: ERECTILE DYSFUNCTION
     Dosage: AS USED: 10 MG  UNIT DOSE: 10 MG
     Route: 048
     Dates: start: 20050801
  2. LEVITRA [Suspect]
     Dosage: TOTAL DAILY DOSE: 20 MG  UNIT DOSE: 20 MG
     Route: 048
  3. FOSINOPRIL SODIUM [Concomitant]
  4. METOPROLOL [Concomitant]
  5. VYTORIN [Concomitant]
  6. TERAZOSIN HCL [Concomitant]
  7. PROSCAR [Concomitant]
  8. ASPIRIN [Concomitant]
  9. VITAMIN [Concomitant]
  10. EZETIMIBE [Concomitant]

REACTIONS (2)
  - ERECTILE DYSFUNCTION [None]
  - RHINORRHOEA [None]
